FAERS Safety Report 9665122 (Version 1)
Quarter: 2013Q4

REPORT INFORMATION
  Report Type: Spontaneous
  Country: US (occurrence: US)
  Receive Date: 20131101
  Receipt Date: 20131101
  Transmission Date: 20140711
  Serious: No
  Sender: FDA-Public Use
  Company Number: US-PFIZER INC-2013309215

PATIENT
  Age: 61 Year
  Sex: Female
  Weight: 100 kg

DRUGS (6)
  1. CHANTIX [Suspect]
     Indication: SMOKING CESSATION THERAPY
     Dosage: UNK
     Dates: start: 20131017, end: 201310
  2. CHANTIX [Suspect]
     Dosage: 1 MG, 2X/DAY
     Dates: start: 201310, end: 20131026
  3. LOTREL [Concomitant]
     Indication: HYPERTENSION
     Dosage: UNK
  4. SERTRALINE [Concomitant]
     Indication: DEPRESSION
     Dosage: UNK
  5. ZANTAC [Concomitant]
     Dosage: UNK
  6. NUCYNTA [Concomitant]
     Dosage: UNK

REACTIONS (6)
  - Oropharyngeal pain [Recovering/Resolving]
  - Headache [Not Recovered/Not Resolved]
  - Cough [Recovering/Resolving]
  - Influenza like illness [Not Recovered/Not Resolved]
  - Nasal congestion [Recovering/Resolving]
  - Fatigue [Recovering/Resolving]
